FAERS Safety Report 4308146-3 (Version None)
Quarter: 2004Q1

REPORT INFORMATION
  Report Type: 
  Country: None (occurrence: None)
  Receive Date: 20040301
  Receipt Date: 20030616
  Transmission Date: 20041129
  Serious: No
  Sender: FDA-Public Use
  Company Number: US-BRISTOL-MYERS SQUIBB COMPANY-12302477

PATIENT
  Age: 48 Year
  Sex: Female
  Weight: 94 kg

DRUGS (2)
  1. GLUCOPHAGE [Suspect]
     Indication: DIABETES MELLITUS
     Route: 048
  2. GALLIUM CITRATE GA-67 INJ [Suspect]

REACTIONS (1)
  - BURNING SENSATION [None]
